FAERS Safety Report 25674500 (Version 2)
Quarter: 2025Q3

REPORT INFORMATION
  Report Type: Report from Study
  Country: US (occurrence: US)
  Receive Date: 20250813
  Receipt Date: 20250918
  Transmission Date: 20251021
  Serious: Yes (Hospitalization)
  Sender: SUNOVION
  Company Number: US-SUMITOMO PHARMA SWITZERLAND GMBH-2024SPA002621

PATIENT
  Age: 78 Year
  Sex: Male

DRUGS (3)
  1. ORGOVYX [Suspect]
     Active Substance: RELUGOLIX
     Indication: Prostate cancer
     Dosage: 360 MG, SINGLE
     Route: 048
     Dates: start: 20240821, end: 20240821
  2. ORGOVYX [Suspect]
     Active Substance: RELUGOLIX
     Dosage: 120 MG, QD
     Route: 048
     Dates: start: 20240822
  3. BAYER ASPIRIN [Concomitant]
     Active Substance: ASPIRIN

REACTIONS (9)
  - Cardiac ablation [Unknown]
  - Cardiac stress test abnormal [Unknown]
  - Palpitations [Unknown]
  - Hot flush [Unknown]
  - Hyperhidrosis [Unknown]
  - Haemoglobin decreased [Unknown]
  - Fatigue [Unknown]
  - Myalgia [Unknown]
  - Asthenia [Unknown]
